FAERS Safety Report 6072232-0 (Version None)
Quarter: 2009Q1

REPORT INFORMATION
  Report Type: 
  Country: None (occurrence: None)
  Receive Date: 20090210
  Receipt Date: 20090202
  Transmission Date: 20090719
  Serious: Yes (Other)
  Sender: FDA-Public Use
  Company Number: DE-ASTRAZENECA-2009PK00501

PATIENT
  Age: 43 Year
  Sex: Female

DRUGS (3)
  1. MERONEM [Suspect]
     Indication: SEPSIS
     Route: 042
     Dates: start: 20090126
  2. AMPICILLIN [Concomitant]
     Indication: SEPSIS
  3. NEXIUM [Concomitant]
     Route: 042

REACTIONS (2)
  - COAGULATION FACTOR DECREASED [None]
  - THROMBOCYTOPENIA [None]
